FAERS Safety Report 13495128 (Version 1)
Quarter: 2017Q2

REPORT INFORMATION
  Report Type: Spontaneous
  Country: US (occurrence: US)
  Receive Date: 20170428
  Receipt Date: 20170428
  Transmission Date: 20170830
  Serious: No
  Sender: FDA-Public Use
  Company Number: US-TEVA-759231ACC

PATIENT
  Age: 65 Year
  Sex: Female

DRUGS (4)
  1. FORTEO [Concomitant]
     Active Substance: TERIPARATIDE
  2. LISINOPRIL. [Concomitant]
     Active Substance: LISINOPRIL
  3. COPAXONE [Suspect]
     Active Substance: GLATIRAMER ACETATE
     Indication: MULTIPLE SCLEROSIS
     Route: 058
     Dates: start: 20170113
  4. CYANOCOBOLAMIN [Concomitant]
     Route: 065

REACTIONS (1)
  - Hypersensitivity [Unknown]

NARRATIVE: CASE EVENT DATE: 20170307
